FAERS Safety Report 4720656-3 (Version None)
Quarter: 2005Q3

REPORT INFORMATION
  Report Type: 
  Country: None (occurrence: None)
  Receive Date: 20050719
  Receipt Date: 20050706
  Transmission Date: 20060218
  Serious: Yes (Hospitalization)
  Sender: FDA-Public Use
  Company Number: 2005098954

PATIENT
  Age: 23 Year
  Sex: Male
  Weight: 97.977 kg

DRUGS (1)
  1. ZIPRASIDONE (CAPS) (ZIPRASIDONE) [Suspect]
     Indication: SCHIZOPHRENIA
     Dosage: 160 MG (80 MG, 2 IN 1 D) ORAL
     Route: 048
     Dates: start: 20050611, end: 20050702

REACTIONS (2)
  - DELUSION [None]
  - PRIAPISM [None]
